FAERS Safety Report 11104500 (Version 3)
Quarter: 2015Q3

REPORT INFORMATION
  Report Type: Spontaneous
  Country: JP (occurrence: JP)
  Receive Date: 20150511
  Receipt Date: 20150716
  Transmission Date: 20151125
  Serious: Yes (Other)
  Sender: FDA-Public Use
  Company Number: PHJP2015JP007169

PATIENT
  Age: 52 Year
  Sex: Female
  Weight: 68.4 kg

DRUGS (7)
  1. AFINITOR [Suspect]
     Active Substance: EVEROLIMUS
     Indication: BREAST CANCER RECURRENT
     Dosage: 10 MG, UNK
     Route: 048
     Dates: start: 20140912
  2. ZOLEDRONATE [Suspect]
     Active Substance: ZOLEDRONIC ACID
     Indication: METASTASES TO BONE
     Dosage: 4 MG,UNK
     Route: 041
  3. AROMASIN [Concomitant]
     Active Substance: EXEMESTANE
     Indication: BREAST CANCER RECURRENT
     Dosage: 25 MG, UNK
     Route: 048
     Dates: start: 20140912, end: 20150511
  4. AFINITOR [Suspect]
     Active Substance: EVEROLIMUS
     Dosage: 5 MG, DAILY
     Route: 048
     Dates: end: 20150511
  5. AROMASIN [Concomitant]
     Active Substance: EXEMESTANE
     Indication: METASTASES TO BONE
  6. VOLTAREN ^CIBA-GEIGY^ [Concomitant]
     Indication: PAIN IN JAW
     Dosage: 25 MG, TID
     Route: 048
     Dates: start: 20130918
  7. OXYCONTIN [Concomitant]
     Active Substance: OXYCODONE HYDROCHLORIDE
     Indication: PAIN IN JAW
     Dosage: 5 MG, BID
     Route: 048
     Dates: start: 20131206, end: 20150603

REACTIONS (15)
  - Osteonecrosis of jaw [Not Recovered/Not Resolved]
  - Erythema [Unknown]
  - Pain [Unknown]
  - Exposed bone in jaw [Unknown]
  - Oral pain [Unknown]
  - Oral cavity fistula [Unknown]
  - Platelet count decreased [Recovered/Resolved]
  - Swelling [Unknown]
  - Lymphadenopathy [Unknown]
  - Soft tissue infection [Unknown]
  - Lymph node pain [Unknown]
  - Anaemia [Recovered/Resolved]
  - Tenderness [Unknown]
  - Stomatitis [Recovered/Resolved]
  - Osteomyelitis [Unknown]

NARRATIVE: CASE EVENT DATE: 20140929
